FAERS Safety Report 5739783-7 (Version None)
Quarter: 2008Q2

REPORT INFORMATION
  Report Type: 
  Country: None (occurrence: None)
  Receive Date: 20080512
  Receipt Date: 20080512
  Transmission Date: 20081010
  Serious: Yes (Disabling)
  Sender: FDA-Public Use
  Company Number: None

PATIENT
  Age: 16 Year
  Sex: Female
  Weight: 72.5755 kg

DRUGS (2)
  1. CREST PRO-HEALTH RINSE PROCTER + GAMBLE [Suspect]
     Indication: DENTAL DISORDER PROPHYLAXIS
     Dosage: 20 ML TWICE A DAY PO
     Route: 048
  2. CREST PRO-HEALTH RINSE PROCTER + GAMBLE [Suspect]
     Indication: GINGIVITIS
     Dosage: 20 ML TWICE A DAY PO
     Route: 048

REACTIONS (1)
  - TOOTH DISCOLOURATION [None]
